FAERS Safety Report 16465806 (Version 1)
Quarter: 2019Q2

REPORT INFORMATION
  Report Type: Report from Study
  Country: JP (occurrence: JP)
  Receive Date: 20190621
  Receipt Date: 20190621
  Transmission Date: 20190711
  Serious: Yes (Other)
  Sender: FDA-Public Use
  Company Number: JP-BEH-2019098825

PATIENT
  Age: 92 Year
  Sex: Female
  Weight: 40 kg

DRUGS (25)
  1. PILSICAINIDE HYDROCHLORIDE [Concomitant]
     Active Substance: PILSICAINIDE HYDROCHLORIDE
     Dosage: UNK
     Route: 048
     Dates: start: 2018, end: 20180216
  2. GENTAMICIN SULFATE. [Concomitant]
     Active Substance: GENTAMICIN SULFATE
     Indication: DERMATITIS
     Dosage: UNK
     Route: 065
     Dates: start: 20180217
  3. KAYTWO N [Concomitant]
     Active Substance: MENATETRENONE
     Indication: VITAMIN K
  4. AZOSEMIDE [Concomitant]
     Active Substance: AZOSEMIDE
     Dosage: UNK
     Route: 048
     Dates: start: 2018, end: 20180216
  5. RINGER^S SOLUTION                  /03112001/ [Concomitant]
     Active Substance: CALCIUM CHLORIDE\POTASSIUM CHLORIDE
     Indication: DEHYDRATION
     Dosage: UNK
     Route: 065
     Dates: start: 20180216, end: 20180216
  6. OMEPRAZOLE                         /00661202/ [Concomitant]
     Active Substance: OMEPRAZOLE SODIUM
     Indication: PROPHYLAXIS AGAINST GASTROINTESTINAL ULCER
     Dosage: UNK
     Route: 065
     Dates: start: 20180216, end: 20180221
  7. BERIPLEX P/N [Suspect]
     Active Substance: COAGULATION FACTOR IX HUMAN\COAGULATION FACTOR VII HUMAN\COAGULATION FACTOR X HUMAN\PROTEIN C\PROTEIN S HUMAN\PROTHROMBIN
     Indication: HAEMORRHAGE
     Dosage: 2000 IU, UNK
     Route: 042
     Dates: start: 20180216
  8. AMLODIPINE                         /00972402/ [Concomitant]
     Active Substance: AMLODIPINE BESYLATE
     Indication: PRODUCT USED FOR UNKNOWN INDICATION
     Dosage: UNK
     Route: 048
     Dates: start: 2018, end: 20180216
  9. GENTAMICIN SULFATE. [Concomitant]
     Active Substance: GENTAMICIN SULFATE
     Indication: THERMAL BURN
  10. KAYTWO N [Concomitant]
     Active Substance: MENATETRENONE
     Indication: PROCOAGULANT THERAPY
     Dosage: 20 MG, QD
     Route: 065
     Dates: start: 20180216, end: 20180216
  11. BISOPROLOL [Concomitant]
     Active Substance: BISOPROLOL
     Indication: PRODUCT USED FOR UNKNOWN INDICATION
     Dosage: UNK
     Route: 065
     Dates: start: 20180218
  12. WARFARIN                           /00014803/ [Concomitant]
     Active Substance: WARFARIN
     Indication: ATRIAL FIBRILLATION
     Dosage: 3 MG, QD
     Route: 048
     Dates: end: 2018
  13. FUROSEMIDE. [Concomitant]
     Active Substance: FUROSEMIDE
     Dosage: UNK
     Route: 048
     Dates: start: 20180223
  14. RISPERDAL [Concomitant]
     Active Substance: RISPERIDONE
     Indication: DELIRIUM
     Dosage: UNK
     Route: 048
     Dates: start: 20180307
  15. ROXATIDINE ACETATE HYDROCHLORIDE [Concomitant]
     Active Substance: ROXATIDINE ACETATE HYDROCHLORIDE
     Indication: PRODUCT USED FOR UNKNOWN INDICATION
     Dosage: UNK
     Route: 048
     Dates: start: 2018, end: 20180216
  16. BARAMYCIN                          /00037701/ [Concomitant]
     Indication: THERMAL BURN
  17. CEFTRIAXONE                        /00672202/ [Concomitant]
     Active Substance: CEFTRIAXONE
     Indication: PYREXIA
     Dosage: UNK
     Route: 065
     Dates: start: 20180302, end: 20180308
  18. SOLDEM 3A [Concomitant]
     Active Substance: CARBOHYDRATES\POTASSIUM CHLORIDE\SODIUM CHLORIDE\SODIUM LACTATE
     Indication: DEHYDRATION
     Dosage: UNK
     Route: 065
     Dates: start: 20180217, end: 20180221
  19. BERIPLEX P/N [Suspect]
     Active Substance: COAGULATION FACTOR IX HUMAN\COAGULATION FACTOR VII HUMAN\COAGULATION FACTOR X HUMAN\PROTEIN C\PROTEIN S HUMAN\PROTHROMBIN
     Dosage: UNK
     Route: 042
     Dates: start: 20180216
  20. VIVIANT [Concomitant]
     Active Substance: BAZEDOXIFENE
     Indication: PRODUCT USED FOR UNKNOWN INDICATION
     Dosage: UNK
     Route: 048
     Dates: start: 2018, end: 20180216
  21. VALSARTAN. [Concomitant]
     Active Substance: VALSARTAN
     Indication: PRODUCT USED FOR UNKNOWN INDICATION
     Dosage: UNK
     Route: 048
     Dates: start: 2018, end: 20180216
  22. BERIPLEX P/N [Suspect]
     Active Substance: COAGULATION FACTOR IX HUMAN\COAGULATION FACTOR VII HUMAN\COAGULATION FACTOR X HUMAN\PROTEIN C\PROTEIN S HUMAN\PROTHROMBIN
     Dosage: UNK
     Route: 042
     Dates: start: 20180216
  23. WARFARIN                           /00014803/ [Concomitant]
     Active Substance: WARFARIN
     Indication: ANTICOAGULANT THERAPY
  24. SPIRONOLACTONE. [Concomitant]
     Active Substance: SPIRONOLACTONE
     Dosage: UNK
     Route: 048
     Dates: start: 20180223
  25. BARAMYCIN                          /00037701/ [Concomitant]
     Indication: SKIN ULCER
     Dosage: UNK
     Route: 065
     Dates: start: 20180227

REACTIONS (4)
  - Delirium [Unknown]
  - Insomnia [Unknown]
  - Pyrexia [Recovering/Resolving]
  - Dehydration [Recovered/Resolved]

NARRATIVE: CASE EVENT DATE: 20180216
